FAERS Safety Report 21090261 (Version 1)
Quarter: 2022Q3

REPORT INFORMATION
  Report Type: Report from Study
  Country: US (occurrence: US)
  Receive Date: 20220715
  Receipt Date: 20220715
  Transmission Date: 20221027
  Serious: Yes (Hospitalization)
  Sender: FDA-Public Use
  Company Number: US-BAUSCH-BL-2022-017927

PATIENT
  Sex: Male

DRUGS (1)
  1. XIFAXAN [Suspect]
     Active Substance: RIFAXIMIN
     Indication: Hepatic encephalopathy
     Dosage: PATIENT WAS UNSURE HOW MANY TIMES A DAY HE TAKES XIFAXAN 550 MG
     Route: 048

REACTIONS (2)
  - Fall [Unknown]
  - Product communication issue [Unknown]
